FAERS Safety Report 6431672-8 (Version None)
Quarter: 2009Q4

REPORT INFORMATION
  Report Type: 
  Country: None (occurrence: None)
  Receive Date: 20091103
  Receipt Date: 20091020
  Transmission Date: 20100525
  Serious: Yes (Death, Hospitalization)
  Sender: FDA-Public Use
  Company Number: 382667

PATIENT
  Age: 17 Year
  Sex: Female

DRUGS (18)
  1. ETOPOSIDE [Suspect]
     Indication: ACUTE LYMPHOCYTIC LEUKAEMIA
     Dosage: 100 MG/M2, 1 DAY,
     Dates: start: 20090420, end: 20090424
  2. CLOFARABINE [Suspect]
     Indication: ACUTE LYMPHOCYTIC LEUKAEMIA
     Dosage: 40 MG/M2, 1 DAY,
     Dates: start: 20090420, end: 20090424
  3. CYCLOPHOSPHAMIDE [Suspect]
     Indication: ACUTE LYMPHOCYTIC LEUKAEMIA
     Dosage: 440 MG/M2, 1 DAY,
     Dates: start: 20090420, end: 20090424
  4. CLOFARABINE [Suspect]
     Indication: ACUTE LYMPHOCYTIC LEUKAEMIA
     Dosage: 40 MG/M2 (1 DAY);
     Dates: start: 20090420, end: 20090424
  5. CYCLOPHOSPHAMIDE [Suspect]
     Dosage: 440 MG/M2 (1 DAY);
     Dates: start: 20090420, end: 20090424
  6. ACYCLOVIR [Concomitant]
  7. CETRIZINE [Concomitant]
  8. CO-TRIMAZOLE [Concomitant]
  9. LEVOMEPROMAZINE [Concomitant]
  10. ONDANSETRON [Concomitant]
  11. PARACETAMOL [Concomitant]
  12. PHENYTOIN [Concomitant]
  13. CASPOFUNGIN ACETATE [Concomitant]
  14. CYCLIZINE [Concomitant]
  15. BISOPROLOL [Concomitant]
  16. CHLORPHENIRAMINE MALEATE [Concomitant]
  17. LANSOPRAZOLE [Concomitant]
  18. ALBUTEROL [Concomitant]

REACTIONS (6)
  - DYSPNOEA [None]
  - GENERAL PHYSICAL HEALTH DETERIORATION [None]
  - INFECTION [None]
  - NEUTROPENIA [None]
  - PYREXIA [None]
  - RESPIRATORY FAILURE [None]
